FAERS Safety Report 7082637-7 (Version None)
Quarter: 2010Q4

REPORT INFORMATION
  Report Type: 
  Country: None (occurrence: None)
  Receive Date: 20101025
  Receipt Date: 20101008
  Transmission Date: 20110411
  Serious: Yes (Other)
  Sender: FDA-Public Use
  Company Number: THQ2010A03081

PATIENT
  Age: 54 Year
  Sex: Male

DRUGS (1)
  1. ACTOPLUS MET [Suspect]
     Indication: DIABETES MELLITUS
     Dosage: 1 DF (1 DF, 1 IN 1 D), PER ORAL
     Route: 048
     Dates: start: 20101007, end: 20101007

REACTIONS (1)
  - STEVENS-JOHNSON SYNDROME [None]
